FAERS Safety Report 6711698-7 (Version None)
Quarter: 2010Q2

REPORT INFORMATION
  Report Type: 
  Country: None (occurrence: None)
  Receive Date: 20100505
  Receipt Date: 20100416
  Transmission Date: 20101027
  Serious: Yes (Other)
  Sender: FDA-Public Use
  Company Number: US-ROCHE-696888

PATIENT
  Sex: Male
  Weight: 100 kg

DRUGS (2)
  1. BEVACIZUMAB [Suspect]
     Indication: METASTATIC RENAL CELL CARCINOMA
     Route: 042
     Dates: start: 20100104, end: 20100315
  2. SORAFENIB [Suspect]
     Indication: METASTATIC RENAL CELL CARCINOMA
     Dosage: ON DAYS 1-5, 8-12, 15-19 AND 22-26 OF 28 DAYS CYCLE
     Route: 048

REACTIONS (1)
  - VASCULITIS [None]
